FAERS Safety Report 6655432-8 (Version None)
Quarter: 2010Q1

REPORT INFORMATION
  Report Type: 
  Country: None (occurrence: None)
  Receive Date: 20100329
  Receipt Date: 20100318
  Transmission Date: 20100710
  Serious: Yes (Hospitalization, Other)
  Sender: FDA-Public Use
  Company Number: US-ASTRAZENECA-2010SE12257

PATIENT
  Age: 63 Year
  Sex: Male

DRUGS (10)
  1. ATENOLOL [Suspect]
     Indication: HYPERTENSION
  2. TARGINACT [Suspect]
     Indication: PAIN
     Dosage: 10 MG/5 MG DAILY
     Route: 048
     Dates: start: 20090827, end: 20090923
  3. CILAZAPRIL [Concomitant]
  4. FENTANYL [Concomitant]
     Dates: start: 20080923
  5. FLUANXOL [Concomitant]
  6. FUROSEMIDE [Concomitant]
  7. LEVOTHYROXINE SODIUM [Concomitant]
  8. MACROGOL [Concomitant]
  9. MEPERIDINE HCL [Concomitant]
  10. PREGABALIN [Concomitant]

REACTIONS (1)
  - AGGRESSION [None]
